FAERS Safety Report 10183828 (Version 1)
Quarter: 2014Q2

REPORT INFORMATION
  Report Type: Spontaneous
  Country: CN (occurrence: CN)
  Receive Date: 20140520
  Receipt Date: 20140520
  Transmission Date: 20141212
  Serious: Yes (Hospitalization)
  Sender: FDA-Public Use
  Company Number: PHHY2014CN059845

PATIENT
  Age: 39 Year
  Sex: Male
  Weight: 66 kg

DRUGS (4)
  1. TEGRETOL [Suspect]
     Indication: SCHIZOPHRENIA
     Dosage: 0.2 G, BID
     Route: 048
     Dates: start: 20130615, end: 20130626
  2. ZYPREXA [Concomitant]
     Indication: SCHIZOPHRENIA
     Dosage: 10 MG, BID
     Route: 048
     Dates: start: 20130602, end: 20130706
  3. PROPRANOLOL HYDROCHLORIDE [Concomitant]
     Indication: ARRHYTHMIA
     Dosage: 10 MG, BID
     Route: 048
     Dates: start: 20130614, end: 20130627
  4. CLONAZEPAM [Concomitant]
     Indication: SEDATION
     Dosage: 2 MG, QD
     Route: 048
     Dates: start: 20130601, end: 20130630

REACTIONS (5)
  - Hepatic function abnormal [Recovering/Resolving]
  - Rash maculo-papular [Recovering/Resolving]
  - Pruritus generalised [Recovering/Resolving]
  - Erythema [Recovering/Resolving]
  - Drug eruption [Recovering/Resolving]
